FAERS Safety Report 6714070-9 (Version None)
Quarter: 2010Q2

REPORT INFORMATION
  Report Type: 
  Country: None (occurrence: None)
  Receive Date: 20100506
  Receipt Date: 20100426
  Transmission Date: 20101027
  Serious: Yes (Hospitalization)
  Sender: FDA-Public Use
  Company Number: US-BAXTER-2010BH006598

PATIENT
  Sex: Female

DRUGS (3)
  1. DIANEAL [Suspect]
     Indication: PERITONEAL DIALYSIS
     Route: 033
  2. EXTRANEAL [Suspect]
     Indication: PERITONEAL DIALYSIS
     Route: 033
     Dates: end: 20100301
  3. EPOGEN [Concomitant]
     Indication: ANAEMIA
     Route: 058

REACTIONS (4)
  - ANAEMIA [None]
  - DISCOMFORT [None]
  - DRUG INEFFECTIVE [None]
  - NASOPHARYNGITIS [None]
